FAERS Safety Report 11453178 (Version 1)
Quarter: 2015Q3

REPORT INFORMATION
  Report Type: Spontaneous
  Country: US (occurrence: US)
  Receive Date: 20150831
  Receipt Date: 20150831
  Transmission Date: 20151125
  Serious: Yes (Other)
  Sender: FDA-Public Use
  Company Number: US-ELI_LILLY_AND_COMPANY-US200911001025

PATIENT
  Age: 64 Year
  Sex: Female

DRUGS (16)
  1. TRAZODONE [Concomitant]
     Active Substance: TRAZODONE HYDROCHLORIDE
     Dosage: 1 D/F, UNK
  2. CYCLOBENZAPRINE [Concomitant]
     Active Substance: CYCLOBENZAPRINE
  3. MORPHINE [Concomitant]
     Active Substance: MORPHINE
     Dosage: 1 D/F, UNK
  4. PROGESTERONE. [Concomitant]
     Active Substance: PROGESTERONE
  5. DEXLANSOPRAZOLE [Concomitant]
     Active Substance: DEXLANSOPRAZOLE
     Dosage: 1 D/F, UNK
  6. CYMBALTA [Suspect]
     Active Substance: DULOXETINE HYDROCHLORIDE
     Dosage: 30 MG, EACH MORNING
     Dates: start: 2006, end: 2009
  7. SYNTHROID [Concomitant]
     Active Substance: LEVOTHYROXINE SODIUM
     Dosage: 1 D/F, UNK
  8. CYMBALTA [Suspect]
     Active Substance: DULOXETINE HYDROCHLORIDE
     Indication: NEURALGIA
     Dosage: 60 MG, EACH EVENING
     Dates: start: 2006, end: 20091015
  9. CYTOMEL [Concomitant]
     Active Substance: LIOTHYRONINE SODIUM
     Dosage: 1 D/F, UNK
  10. TOPIRAMATE. [Concomitant]
     Active Substance: TOPIRAMATE
     Dosage: 1 D/F, UNK
  11. BOTOX [Concomitant]
     Active Substance: ONABOTULINUMTOXINA
     Indication: HEADACHE
     Dosage: 1 D/F, UNK
  12. PERCOCET [Concomitant]
     Active Substance: ACETAMINOPHEN\OXYCODONE HYDROCHLORIDE
     Dosage: 1 D/F, UNK
  13. VITAMINS [Concomitant]
     Active Substance: VITAMINS
     Dosage: 1 D/F, UNK
  14. IMITREX [Concomitant]
     Active Substance: SUMATRIPTAN\SUMATRIPTAN SUCCINATE
     Indication: MIGRAINE
     Dosage: 1 D/F, UNK
  15. ESTROGENS [Concomitant]
     Active Substance: ESTROGENS
     Dosage: 1 D/F, UNK
  16. KLONOPIN [Concomitant]
     Active Substance: CLONAZEPAM
     Dosage: 1 D/F, UNK

REACTIONS (13)
  - Asthenia [Recovered/Resolved]
  - Drug withdrawal syndrome [Recovering/Resolving]
  - Neck pain [Recovering/Resolving]
  - Migraine [Unknown]
  - Swelling face [Recovering/Resolving]
  - Headache [Recovering/Resolving]
  - Muscle spasms [Unknown]
  - Joint swelling [Recovering/Resolving]
  - Off label use [Recovered/Resolved]
  - Dyspnoea [Recovered/Resolved]
  - Localised oedema [Recovering/Resolving]
  - Abdominal pain upper [Recovered/Resolved]
  - Arthritis [Unknown]

NARRATIVE: CASE EVENT DATE: 2009
